FAERS Safety Report 4661193-4 (Version None)
Quarter: 2005Q2

REPORT INFORMATION
  Report Type: 
  Country: None (occurrence: None)
  Receive Date: 20050511
  Receipt Date: 20050428
  Transmission Date: 20051028
  Serious: Yes (Hospitalization)
  Sender: FDA-Public Use
  Company Number: MEDI-0003128

PATIENT
  Age: 16 Month
  Sex: Male

DRUGS (6)
  1. SYNAGIS [Suspect]
     Indication: ANTIVIRAL PROPHYLAXIS
     Dosage: 65 + 37 + 50 + 60 MG, 1 IN 30 D, INTRAMUSCULAR (SEE IMAGE)
     Route: 030
     Dates: start: 20030105, end: 20030328
  2. SYNAGIS [Suspect]
     Indication: ANTIVIRAL PROPHYLAXIS
     Dosage: 65 + 37 + 50 + 60 MG, 1 IN 30 D, INTRAMUSCULAR (SEE IMAGE)
     Route: 030
     Dates: start: 20030105
  3. SYNAGIS [Suspect]
     Indication: ANTIVIRAL PROPHYLAXIS
     Dosage: 65 + 37 + 50 + 60 MG, 1 IN 30 D, INTRAMUSCULAR (SEE IMAGE)
     Route: 030
     Dates: start: 20030131
  4. SYNAGIS [Suspect]
     Indication: ANTIVIRAL PROPHYLAXIS
     Dosage: 65 + 37 + 50 + 60 MG, 1 IN 30 D, INTRAMUSCULAR (SEE IMAGE)
     Route: 030
     Dates: start: 20030228
  5. FERRIC PYROPHOSPHATE (FERRIC PYROPHOSPHATE) [Concomitant]
  6. ALFACALCIDOL (ALFACALCIDOL) [Concomitant]

REACTIONS (1)
  - ASTHMA [None]
